FAERS Safety Report 8524731-7 (Version None)
Quarter: 2012Q3

REPORT INFORMATION
  Report Type: 
  Country: None (occurrence: None)
  Receive Date: 20120720
  Receipt Date: 20120706
  Transmission Date: 20120928
  Serious: Yes (Other)
  Sender: FDA-Public Use
  Company Number: GB-ELI_LILLY_AND_COMPANY-GB201207002639

PATIENT
  Age: 15 Year
  Sex: Female

DRUGS (2)
  1. SEROQUEL XR [Concomitant]
  2. FLUOXETINE HCL [Suspect]
     Dosage: 20 MG, QOD

REACTIONS (2)
  - AMNESIA [None]
  - INAPPROPRIATE SCHEDULE OF DRUG ADMINISTRATION [None]
